FAERS Safety Report 13874122 (Version 1)
Quarter: 2017Q3

REPORT INFORMATION
  Report Type: Report from Study
  Country: US (occurrence: US)
  Receive Date: 20170816
  Receipt Date: 20170816
  Transmission Date: 20171127
  Serious: Yes (Death)
  Sender: FDA-Public Use
  Company Number: US-ACTELION-A-US2016-143056

PATIENT
  Age: 75 Year
  Sex: Female
  Weight: 68.27 kg

DRUGS (5)
  1. OPSUMIT [Suspect]
     Active Substance: MACITENTAN
     Indication: PULMONARY HYPERTENSION
     Dosage: 10 MG, QD
     Route: 048
     Dates: start: 20160525
  2. ADCIRCA [Concomitant]
     Active Substance: TADALAFIL
  3. PREDNISONE. [Suspect]
     Active Substance: PREDNISONE
     Indication: PRODUCT USED FOR UNKNOWN INDICATION
     Route: 065
  4. ORENITRAM [Concomitant]
     Active Substance: TREPROSTINIL
  5. DILTIAZEM. [Concomitant]
     Active Substance: DILTIAZEM

REACTIONS (15)
  - Dyspnoea [Unknown]
  - Lung disorder [Fatal]
  - Muscular weakness [Unknown]
  - Gait inability [Unknown]
  - Influenza like illness [Unknown]
  - Pyrexia [Unknown]
  - Throat irritation [Unknown]
  - Lung infection [Unknown]
  - Palpitations [Unknown]
  - Pain [Unknown]
  - Chills [Unknown]
  - Chest discomfort [Unknown]
  - Headache [Unknown]
  - Loss of personal independence in daily activities [Unknown]
  - Swelling face [Unknown]

NARRATIVE: CASE EVENT DATE: 201705
